FAERS Safety Report 6495217-9 (Version None)
Quarter: 2009Q4

REPORT INFORMATION
  Report Type: 
  Country: None (occurrence: None)
  Receive Date: 20091214
  Receipt Date: 20090514
  Transmission Date: 20100525
  Serious: No
  Sender: FDA-Public Use
  Company Number: US-BRISTOL-MYERS SQUIBB COMPANY-14624498

PATIENT
  Age: 58 Year
  Sex: Female
  Weight: 100 kg

DRUGS (9)
  1. ABILIFY [Suspect]
     Indication: BIPOLAR DISORDER
     Dosage: 1 DOSAGEFORM = 15MG AT NIGHT AND 2MG IN MORNING
     Dates: start: 20090401
  2. KLONOPIN [Concomitant]
  3. BENADRYL [Concomitant]
  4. NIACIN [Concomitant]
  5. ASCORBIC ACID [Concomitant]
  6. VITAMIN D [Concomitant]
  7. MAGNESIUM [Concomitant]
  8. GARLIC [Concomitant]
  9. LITHIUM [Concomitant]

REACTIONS (2)
  - ANXIETY [None]
  - RESTLESSNESS [None]
